FAERS Safety Report 16099729 (Version 1)
Quarter: 2019Q1

REPORT INFORMATION
  Report Type: Spontaneous
  Country: SE (occurrence: SE)
  Receive Date: 20190321
  Receipt Date: 20190321
  Transmission Date: 20190418
  Serious: Yes (Hospitalization, Other)
  Sender: FDA-Public Use
  Company Number: SE-PFIZER INC-2019114958

PATIENT
  Age: 8 Decade
  Sex: Female

DRUGS (9)
  1. HALDOL [Suspect]
     Active Substance: HALOPERIDOL
     Dosage: UNK (DOSE OF 1 ML 5 MG)
     Route: 065
     Dates: start: 20190217, end: 201902
  2. ABILIFY [Suspect]
     Active Substance: ARIPIPRAZOLE
     Dosage: 30 MG, UNK
     Route: 065
     Dates: start: 20190218, end: 201902
  3. CLOMETHIAZOLE [Suspect]
     Active Substance: CLOMETHIAZOLE
     Dosage: 200 MG, UNK
     Route: 065
     Dates: start: 20190217, end: 201902
  4. ABILIFY [Suspect]
     Active Substance: ARIPIPRAZOLE
     Dosage: UNK
     Route: 065
     Dates: start: 2018
  5. ZOPICLONE [Suspect]
     Active Substance: ZOPICLONE
     Dosage: 5 MG, 1X/DAY
     Route: 065
     Dates: start: 20190218, end: 201902
  6. ATIVAN [Suspect]
     Active Substance: LORAZEPAM
     Dosage: 1 ML, UNK
     Route: 065
     Dates: start: 20190217, end: 201902
  7. ABILIFY [Suspect]
     Active Substance: ARIPIPRAZOLE
     Dosage: 10 MG, UNK
     Route: 065
     Dates: start: 2018, end: 201902
  8. ABILIFY [Suspect]
     Active Substance: ARIPIPRAZOLE
     Dosage: 15 MG, UNK
     Route: 065
     Dates: start: 20190210, end: 201902
  9. MELATONIN [Suspect]
     Active Substance: MELATONIN
     Dosage: 2 MG, 1X/DAY
     Route: 065
     Dates: start: 20190219, end: 201902

REACTIONS (3)
  - Loss of consciousness [Recovered/Resolved]
  - Aggression [Unknown]
  - Psychotic disorder [Not Recovered/Not Resolved]

NARRATIVE: CASE EVENT DATE: 2019
